FAERS Safety Report 24095533 (Version 2)
Quarter: 2025Q2

REPORT INFORMATION
  Report Type: Report from Study
  Country: ZA (occurrence: ZA)
  Receive Date: 20240716
  Receipt Date: 20250429
  Transmission Date: 20250717
  Serious: Yes (Hospitalization, Other)
  Sender: NOVARTIS
  Company Number: ZA-002147023-NVSC2024ZA138888

PATIENT
  Age: 50 Year
  Sex: Female

DRUGS (2)
  1. OFATUMUMAB [Suspect]
     Active Substance: OFATUMUMAB
     Indication: Multiple sclerosis
     Dosage: 20 MG, QMO
     Route: 058
     Dates: start: 20240405
  2. OFATUMUMAB [Suspect]
     Active Substance: OFATUMUMAB
     Dosage: 20 MG, QMO
     Route: 058
     Dates: start: 202404

REACTIONS (7)
  - Optic neuritis [Recovering/Resolving]
  - Multiple sclerosis relapse [Unknown]
  - Hypoaesthesia [Unknown]
  - Visual impairment [Unknown]
  - Asthenia [Unknown]
  - Muscle spasticity [Unknown]
  - Memory impairment [Unknown]

NARRATIVE: CASE EVENT DATE: 20240624
